FAERS Safety Report 8112892-3 (Version None)
Quarter: 2012Q1

REPORT INFORMATION
  Report Type: 
  Country: None (occurrence: None)
  Receive Date: 20120131
  Receipt Date: 20120116
  Transmission Date: 20120608
  Serious: Yes (Life-Threatening, Hospitalization, Other)
  Sender: FDA-Public Use
  Company Number: CL-379-2012

PATIENT
  Age: 48 Year
  Sex: Male

DRUGS (3)
  1. SUCRALFATE [Suspect]
     Dosage: GASTROINTESTINAL DISORDER
  2. CIPROFLOXACIN [Suspect]
     Indication: GASTROINTESTINAL DISORDER
  3. METRONIDAZOLE [Suspect]
     Indication: GASTROINTESTINAL DISORDER

REACTIONS (8)
  - CELLULITIS [None]
  - NECROTISING FASCIITIS [None]
  - SCROTAL OEDEMA [None]
  - LEUKOCYTOCLASTIC VASCULITIS [None]
  - SCROTAL HAEMATOCOELE [None]
  - JOINT SWELLING [None]
  - INFLAMMATION [None]
  - PAIN [None]
